FAERS Safety Report 9524232 (Version 1)
Quarter: 2013Q1

REPORT INFORMATION
  Report Type: Spontaneous
  Country: US (occurrence: None)
  Receive Date: 20130305
  Receipt Date: 20130305
  Transmission Date: 20140127
  Serious: Yes (Hospitalization)
  Sender: FDA-Public Use
  Company Number: 163-21880-12031079

PATIENT
  Age: 76 Year
  Sex: Female

DRUGS (2)
  1. REVLIMID [Suspect]
     Indication: PLASMA CELL MYELOMA
     Dosage: QDAY X 21DAYS/28DAYS
     Route: 048
     Dates: start: 20120209, end: 20120301
  2. DEXAMETHASONE [Suspect]

REACTIONS (2)
  - Dyspnoea [None]
  - Fluid retention [None]
